FAERS Safety Report 5121073-7 (Version None)
Quarter: 2006Q4

REPORT INFORMATION
  Report Type: 
  Country: None (occurrence: None)
  Receive Date: 20061002
  Receipt Date: 20060919
  Transmission Date: 20070319
  Serious: Yes (Life-Threatening, Hospitalization)
  Sender: FDA-Public Use
  Company Number: 2006113253

PATIENT
  Age: 58 Year
  Sex: Male

DRUGS (2)
  1. SUTENT [Suspect]
     Dosage: ORAL
     Route: 048
  2. SOLUPRED (PREDNISOLONE SODIUM SULFOBENZOATE) [Concomitant]

REACTIONS (2)
  - LUNG DISORDER [None]
  - PNEUMOCOCCAL INFECTION [None]
